FAERS Safety Report 4594009-5 (Version None)
Quarter: 2005Q1

REPORT INFORMATION
  Report Type: 
  Country: None (occurrence: None)
  Receive Date: 20050218
  Receipt Date: 20050124
  Transmission Date: 20050727
  Serious: Yes (Death, Hospitalization)
  Sender: FDA-Public Use
  Company Number: 2005013864

PATIENT
  Age: 66 Year
  Sex: Female
  Weight: 55 kg

DRUGS (5)
  1. AROMASIN [Suspect]
     Indication: BREAST CANCER
     Dosage: SEE IMAGE
     Route: 048
     Dates: start: 20000904, end: 20030823
  2. AROMASIN [Suspect]
     Indication: BREAST CANCER
     Dosage: SEE IMAGE
     Route: 048
     Dates: start: 20040819
  3. NAPROXEN [Concomitant]
  4. OXAZEPAM [Concomitant]
  5. TEMAZEPAM [Concomitant]

REACTIONS (1)
  - GASTROINTESTINAL PERFORATION [None]
